FAERS Safety Report 16215097 (Version 1)
Quarter: 2019Q2

REPORT INFORMATION
  Report Type: Spontaneous
  Country: US (occurrence: US)
  Receive Date: 20190418
  Receipt Date: 20190418
  Transmission Date: 20190711
  Serious: Yes (Hospitalization)
  Sender: FDA-Public Use
  Company Number: None

PATIENT
  Age: 49 Year
  Sex: Female

DRUGS (13)
  1. IBUPROFEN 800MG TABLET [Concomitant]
     Active Substance: IBUPROFEN
     Dates: start: 20180416
  2. LEFLUNOMIDE TABLET 20MG [Concomitant]
     Dates: start: 20190318, end: 20190418
  3. TIZANIDINE TABLET 4MG [Concomitant]
     Dates: start: 20190311, end: 20190410
  4. ZIPRASIDONE CAPSULE 40 [Concomitant]
     Dates: start: 20190220
  5. VENLAFAXINE CAPSULE 75MG ER [Concomitant]
     Dates: start: 20190327
  6. SERTRALINE 100MG TABLET [Concomitant]
     Active Substance: SERTRALINE HYDROCHLORIDE
     Dates: start: 20190220
  7. BREO ELLIPTA INH 200-25 [Concomitant]
     Dates: start: 20190311, end: 20190410
  8. HUMIRA [Suspect]
     Active Substance: ADALIMUMAB
     Indication: SPONDYLOARTHROPATHY
     Dosage: ?          OTHER FREQUENCY:EVERY OTHER WEEK;?
     Route: 058
     Dates: start: 20181219
  9. CLINDAMYCIN CAPSULE 300MG [Concomitant]
     Dates: start: 20190328, end: 20190404
  10. PREDNISONE 5 MG TABLET [Concomitant]
     Dates: start: 20190311, end: 20190321
  11. AZELASTINE SPR 0.1% [Concomitant]
     Dates: start: 20190311, end: 20190405
  12. ESZOPICLONE TABLET 3MG [Concomitant]
     Dates: start: 20190311, end: 20190411
  13. MONTELUKAST [Concomitant]
     Active Substance: MONTELUKAST SODIUM
     Dates: start: 20190311, end: 20190410

REACTIONS (3)
  - Infection [None]
  - Rash [None]
  - Inflammation [None]

NARRATIVE: CASE EVENT DATE: 20190401
